FAERS Safety Report 4828186-5 (Version None)
Quarter: 2005Q4

REPORT INFORMATION
  Report Type: 
  Country: None (occurrence: None)
  Receive Date: 20051115
  Receipt Date: 20051108
  Transmission Date: 20060501
  Serious: Yes (Hospitalization)
  Sender: FDA-Public Use
  Company Number: US-GLAXOSMITHKLINE-A0582030A

PATIENT
  Sex: Female
  Weight: 3.1 kg

DRUGS (5)
  1. BUPROPION HCL [Suspect]
     Indication: MAJOR DEPRESSION
     Dosage: 300MG PER DAY
  2. PRENATAL VITAMINS [Concomitant]
  3. METAMUCIL [Concomitant]
  4. TYLENOL (CAPLET) [Concomitant]
  5. SSRI [Concomitant]

REACTIONS (2)
  - DRUG EXPOSURE DURING PREGNANCY [None]
  - INFANTILE APNOEIC ATTACK [None]
